FAERS Safety Report 14184839 (Version 1)
Quarter: 2017Q4

REPORT INFORMATION
  Report Type: Report from Study
  Country: US (occurrence: US)
  Receive Date: 20171114
  Receipt Date: 20171114
  Transmission Date: 20180321
  Serious: No
  Sender: FDA-Public Use
  Company Number: US-THERATECHNOLOGIES, INC.-TH-2017-00342

PATIENT

DRUGS (13)
  1. INVOKANA [Concomitant]
     Active Substance: CANAGLIFLOZIN
  2. METFORMIN [Concomitant]
     Active Substance: METFORMIN HYDROCHLORIDE
  3. FAMOTIDINE. [Concomitant]
     Active Substance: FAMOTIDINE
  4. NEVIRAPINE. [Concomitant]
     Active Substance: NEVIRAPINE
  5. OXYMORPHONE [Concomitant]
     Active Substance: OXYMORPHONE
  6. PRAVASTATIN. [Concomitant]
     Active Substance: PRAVASTATIN
  7. EGRIFTA [Suspect]
     Active Substance: TESAMORELIN
     Dosage: UNK
     Dates: start: 20170623
  8. GEMFIBROZIL. [Concomitant]
     Active Substance: GEMFIBROZIL
  9. LISINOPRIL. [Concomitant]
     Active Substance: LISINOPRIL
  10. ABACAVIR. [Concomitant]
     Active Substance: ABACAVIR
  11. GABAPENTIN. [Concomitant]
     Active Substance: GABAPENTIN
  12. GLIMEPIRIDE. [Concomitant]
     Active Substance: GLIMEPIRIDE
  13. REYATAZ [Concomitant]
     Active Substance: ATAZANAVIR SULFATE

REACTIONS (1)
  - Glycosylated haemoglobin increased [Not Recovered/Not Resolved]
